FAERS Safety Report 6836992-0 (Version None)
Quarter: 2010Q3

REPORT INFORMATION
  Report Type: 
  Country: None (occurrence: None)
  Receive Date: 20100713
  Receipt Date: 20100709
  Transmission Date: 20110219
  Serious: Yes (Death, Other)
  Sender: FDA-Public Use
  Company Number: PHHY2009FR21663

PATIENT
  Sex: Male

DRUGS (2)
  1. AREDIA [Suspect]
     Indication: MULTIPLE MYELOMA
     Dosage: 90MG/10ML, 1 INFUSION EVERY 4 WEEKS
     Dates: start: 19990501, end: 20080901
  2. DURAGESIC-100 [Concomitant]
     Indication: PAIN

REACTIONS (6)
  - BONE DISORDER [None]
  - BONE LESION [None]
  - DEATH [None]
  - OSTEOLYSIS [None]
  - OSTEONECROSIS OF JAW [None]
  - TOOTH AVULSION [None]
